FAERS Safety Report 19595765 (Version 1)
Quarter: 2021Q3

REPORT INFORMATION
  Report Type: Spontaneous
  Country: CN (occurrence: CN)
  Receive Date: 20210722
  Receipt Date: 20210722
  Transmission Date: 20211014
  Serious: Yes (Hospitalization, Other)
  Sender: FDA-Public Use
  Company Number: CN-009507513-2107CHN005905

PATIENT
  Age: 61 Year
  Sex: Male
  Weight: 65 kg

DRUGS (4)
  1. KEYTRUDA [Suspect]
     Active Substance: PEMBROLIZUMAB
     Indication: CHEMOTHERAPY
     Dosage: 100 MILLIGRAM, ONCE
     Route: 041
     Dates: start: 20210520, end: 20210520
  2. DOCETAXEL. [Suspect]
     Active Substance: DOCETAXEL
     Indication: CHEMOTHERAPY
     Dosage: 120 MILLIGRAM, ONCE
     Route: 041
     Dates: start: 20210520, end: 20210520
  3. SODIUM CHLORIDE. [Suspect]
     Active Substance: SODIUM CHLORIDE
     Dosage: INDICATION REPORTED AS SOLVENT
     Route: 041
     Dates: start: 20210520, end: 20210520
  4. SODIUM CHLORIDE. [Suspect]
     Active Substance: SODIUM CHLORIDE
     Dosage: INDICATION REPORTED AS SOLVENT
     Route: 041
     Dates: start: 20210520, end: 20210520

REACTIONS (1)
  - Myelosuppression [Recovering/Resolving]

NARRATIVE: CASE EVENT DATE: 20210605
